FAERS Safety Report 5670079-8 (Version None)
Quarter: 2008Q1

REPORT INFORMATION
  Report Type: 
  Country: None (occurrence: None)
  Receive Date: 20080317
  Receipt Date: 20080304
  Transmission Date: 20080703
  Serious: Yes (Hospitalization)
  Sender: FDA-Public Use
  Company Number: AU-AMGEN-QUU250141

PATIENT

DRUGS (6)
  1. NEULASTA [Suspect]
     Indication: CHEMOTHERAPY
  2. RITUXIMAB [Concomitant]
  3. CYCLOPHOSPHAMIDE [Concomitant]
  4. DOXORUBICIN HYDROCHLORIDE [Concomitant]
  5. VINCRISTINE [Concomitant]
  6. PREDNISONE TAB [Concomitant]

REACTIONS (1)
  - FEBRILE NEUTROPENIA [None]
